FAERS Safety Report 7163878-7 (Version None)
Quarter: 2010Q4

REPORT INFORMATION
  Report Type: 
  Country: None (occurrence: None)
  Receive Date: 20101215
  Receipt Date: 20100628
  Transmission Date: 20110411
  Serious: Yes (Death, Other)
  Sender: FDA-Public Use
  Company Number: JP-PFIZER INC-2010080502

PATIENT
  Age: 71 Year
  Sex: Male

DRUGS (2)
  1. LYRICA [Suspect]
     Indication: POST HERPETIC NEURALGIA
     Dosage: 150 MG, DAILY
     Route: 048
     Dates: start: 20100625
  2. METHYCOBAL [Suspect]
     Indication: POST HERPETIC NEURALGIA
     Dosage: 1500 UG, DAILY
     Route: 048
     Dates: start: 20100625

REACTIONS (2)
  - BRONCHIAL SECRETION RETENTION [None]
  - DEATH [None]
